FAERS Safety Report 9405157 (Version 3)
Quarter: 2013Q3

REPORT INFORMATION
  Report Type: Spontaneous
  Country: US (occurrence: US)
  Receive Date: 20130717
  Receipt Date: 20130902
  Transmission Date: 20140515
  Serious: Yes (Other)
  Sender: FDA-Public Use
  Company Number: US-PFIZER INC-2013205761

PATIENT
  Age: 67 Year
  Sex: Female
  Weight: 63.5 kg

DRUGS (4)
  1. PREMARIN [Suspect]
     Indication: ATROPHIC VULVOVAGINITIS
     Dosage: 1 G, 3X/WEEK
     Route: 067
     Dates: start: 201207
  2. PREMARIN [Suspect]
     Indication: VAGINAL DISORDER
     Dosage: 0.5 G, 2X/WEEK
     Route: 067
  3. ATENOLOL [Concomitant]
     Indication: HYPERTENSION
     Dosage: 75 MG, 2X/DAY
  4. AMLODIPINE [Concomitant]
     Indication: HYPERTENSION
     Dosage: 10 MG, 1X/DAY

REACTIONS (1)
  - Urinary incontinence [Not Recovered/Not Resolved]
